FAERS Safety Report 14565885 (Version 1)
Quarter: 2018Q1

REPORT INFORMATION
  Report Type: Spontaneous
  Country: US (occurrence: US)
  Receive Date: 20180222
  Receipt Date: 20180222
  Transmission Date: 20180509
  Serious: Yes (Hospitalization)
  Sender: FDA-Public Use
  Company Number: None

PATIENT
  Age: 51 Year
  Sex: Male

DRUGS (1)
  1. WARFARIN [Suspect]
     Active Substance: WARFARIN
     Indication: AORTIC VALVE DISEASE
     Dosage: MG EVERY DAY PO
     Route: 048

REACTIONS (8)
  - Contusion [None]
  - Musculoskeletal pain [None]
  - Muscle haemorrhage [None]
  - Fall [None]
  - Flank pain [None]
  - Blood creatinine increased [None]
  - Blood sodium decreased [None]
  - International normalised ratio increased [None]

NARRATIVE: CASE EVENT DATE: 20180208
